FAERS Safety Report 6700215-3 (Version None)
Quarter: 2010Q2

REPORT INFORMATION
  Report Type: 
  Country: None (occurrence: None)
  Receive Date: 20100428
  Receipt Date: 20100419
  Transmission Date: 20101027
  Serious: Yes (Other)
  Sender: FDA-Public Use
  Company Number: US-PFIZER INC-2010049936

PATIENT
  Age: 16 Year
  Sex: Female

DRUGS (4)
  1. GEODON [Suspect]
     Indication: BIPOLAR DISORDER
     Dosage: 200 MG, 2X/DAY
     Route: 048
  2. LITHIUM [Concomitant]
     Dosage: UNK
  3. ZOLOFT [Concomitant]
     Dosage: UNK
  4. WELLBUTRIN XL [Concomitant]
     Dosage: UNK

REACTIONS (2)
  - PSYCHOTIC DISORDER [None]
  - WITHDRAWAL SYNDROME [None]
